FAERS Safety Report 9413048 (Version 1)
Quarter: 2013Q3

REPORT INFORMATION
  Report Type: Spontaneous
  Country: US (occurrence: US)
  Receive Date: 20130722
  Receipt Date: 20130722
  Transmission Date: 20140515
  Serious: Yes (Hospitalization, Other)
  Sender: FDA-Public Use
  Company Number: US-GENZYME-FABR-1003432

PATIENT
  Age: 38 Year
  Sex: Male

DRUGS (1)
  1. FABRAZYME [Suspect]
     Indication: FABRY^S DISEASE
     Dosage: 0.49 MG/KG, 1X/W
     Route: 042

REACTIONS (7)
  - Hip fracture [Unknown]
  - Hip fracture [Unknown]
  - Osteoporosis [Unknown]
  - Hyperparathyroidism [Unknown]
  - Thyroid neoplasm [Unknown]
  - Lymphoedema [Unknown]
  - Pain [Not Recovered/Not Resolved]
